FAERS Safety Report 9971374 (Version 3)
Quarter: 2014Q2

REPORT INFORMATION
  Report Type: Spontaneous
  Country: IT (occurrence: IT)
  Receive Date: 20140306
  Receipt Date: 20140428
  Transmission Date: 20141212
  Serious: Yes (Hospitalization)
  Sender: FDA-Public Use
  Company Number: IT-TEVA-465589ISR

PATIENT
  Age: 38 Year
  Sex: Female

DRUGS (10)
  1. QUETIAPINA TEVA 200 MG [Suspect]
     Indication: SUICIDE ATTEMPT
     Dosage: 200 MILLIGRAM DAILY;
     Route: 048
     Dates: start: 20131029, end: 201312
  2. QUETIAPINA TEVA 200 MG [Suspect]
     Dosage: 600 MILLIGRAM DAILY;
     Route: 048
     Dates: start: 201401
  3. QUETIAPINA TEVA 200 MG [Suspect]
     Dosage: 50 DOSAGE FORMS DAILY;
     Route: 048
     Dates: start: 20140214, end: 20140214
  4. SEROQUEL 300 MG (NOT SPECIFIED) [Suspect]
     Indication: SUICIDE ATTEMPT
     Dosage: 600 MILLIGRAM DAILY;
     Route: 048
     Dates: start: 20130705, end: 201401
  5. SEROQUEL 300 MG (NOT SPECIFIED) [Suspect]
     Dosage: 50 DOSAGE FORMS DAILY;
     Route: 048
     Dates: start: 20140214, end: 20140214
  6. DEPAKIN CHRONO 300 MG [Suspect]
     Indication: SUICIDE ATTEMPT
     Dosage: 10 DOSAGE FORMS DAILY;
     Route: 048
     Dates: start: 20140214, end: 20140214
  7. EN 2 MG [Suspect]
     Indication: SUICIDE ATTEMPT
     Dosage: 6 MILLIGRAM DAILY;
     Route: 048
     Dates: start: 201401
  8. EN 2 MG [Suspect]
     Dosage: 18 DOSAGE FORMS DAILY;
     Route: 048
     Dates: start: 20140214, end: 20140214
  9. ALCOHOL [Concomitant]
     Dosage: RED WINE
  10. PAROXETINA [Concomitant]
     Indication: AFFECTIVE DISORDER
     Dosage: 20 DOSAGE FORMS DAILY; RED WINE
     Route: 048
     Dates: start: 20140101, end: 20140219

REACTIONS (4)
  - Drug abuse [Recovered/Resolved]
  - Sopor [Recovered/Resolved]
  - Suicide attempt [Recovered/Resolved]
  - Intentional overdose [Recovered/Resolved]
